FAERS Safety Report 6144617-5 (Version None)
Quarter: 2009Q2

REPORT INFORMATION
  Report Type: 
  Country: None (occurrence: None)
  Receive Date: 20090401
  Receipt Date: 20090318
  Transmission Date: 20091009
  Serious: Yes (Hospitalization, Other)
  Sender: FDA-Public Use
  Company Number: A-JP2008-21360

PATIENT
  Age: 61 Year
  Sex: Female
  Weight: 48 kg

DRUGS (11)
  1. TRACLEER [Suspect]
     Indication: PULMONARY HYPERTENSION
     Dosage: 62.5 MG, BID, ORAL; 62.5 MG, BID, ORAL; 125 MG, BID, ORAL; 31.25 MG, BID, ORAL; 62.5 MG, BID, ORAL
     Route: 048
     Dates: start: 20080530, end: 20080702
  2. TRACLEER [Suspect]
     Indication: PULMONARY HYPERTENSION
     Dosage: 62.5 MG, BID, ORAL; 62.5 MG, BID, ORAL; 125 MG, BID, ORAL; 31.25 MG, BID, ORAL; 62.5 MG, BID, ORAL
     Route: 048
     Dates: start: 20080703, end: 20080706
  3. TRACLEER [Suspect]
     Indication: PULMONARY HYPERTENSION
     Dosage: 62.5 MG, BID, ORAL; 62.5 MG, BID, ORAL; 125 MG, BID, ORAL; 31.25 MG, BID, ORAL; 62.5 MG, BID, ORAL
     Route: 048
     Dates: start: 20080707, end: 20080711
  4. TRACLEER [Suspect]
     Indication: PULMONARY HYPERTENSION
     Dosage: 62.5 MG, BID, ORAL; 62.5 MG, BID, ORAL; 125 MG, BID, ORAL; 31.25 MG, BID, ORAL; 62.5 MG, BID, ORAL
     Route: 048
     Dates: start: 20080712, end: 20080807
  5. TRACLEER [Suspect]
     Indication: PULMONARY HYPERTENSION
     Dosage: 62.5 MG, BID, ORAL; 62.5 MG, BID, ORAL; 125 MG, BID, ORAL; 31.25 MG, BID, ORAL; 62.5 MG, BID, ORAL
     Route: 048
     Dates: start: 20080808
  6. WARFARIN SODIUM [Concomitant]
  7. TORSEMIDE [Concomitant]
  8. AZELNIDIPINE (AZELNIDIPINE) [Concomitant]
  9. SPIRONOLACTONE [Concomitant]
  10. SULFAMETHOXAZOLE AND TRIMETHOPRIM (TRIMETHOPRIM, SULFAMETHOXAZOLE) [Concomitant]
  11. OXYGEN (OXYGEN) [Concomitant]

REACTIONS (6)
  - ALANINE AMINOTRANSFERASE INCREASED [None]
  - ASPARTATE AMINOTRANSFERASE INCREASED [None]
  - EPISTAXIS [None]
  - GAMMA-GLUTAMYLTRANSFERASE INCREASED [None]
  - OFF LABEL USE [None]
  - PULMONARY HAEMORRHAGE [None]
